FAERS Safety Report 4907948-X (Version None)
Quarter: 2006Q1

REPORT INFORMATION
  Report Type: 
  Country: None (occurrence: None)
  Receive Date: 20060210
  Receipt Date: 20060125
  Transmission Date: 20060701
  Serious: Yes (Other)
  Sender: FDA-Public Use
  Company Number: CA-JNJFOC-20060105380

PATIENT
  Sex: Female

DRUGS (3)
  1. REMICADE [Suspect]
     Route: 042
  2. REMICADE [Suspect]
     Route: 042
  3. REMICADE [Suspect]
     Indication: CROHN'S DISEASE
     Dosage: THIS WAS PATIENT'S 3RD DOSE.
     Route: 042

REACTIONS (5)
  - INFLUENZA LIKE ILLNESS [None]
  - JOINT STIFFNESS [None]
  - MEDICATION ERROR [None]
  - PAIN IN JAW [None]
  - SERUM SICKNESS [None]
